FAERS Safety Report 12159772 (Version 1)
Quarter: 2016Q1

REPORT INFORMATION
  Report Type: Spontaneous
  Country: US (occurrence: US)
  Receive Date: 20160308
  Receipt Date: 20160308
  Transmission Date: 20160526
  Serious: Yes (Other)
  Sender: FDA-Public Use
  Company Number: US-BAYER-2016-040984

PATIENT
  Age: 55 Year
  Sex: Female

DRUGS (1)
  1. GADAVIST [Suspect]
     Active Substance: GADOBUTROL
     Indication: NUCLEAR MAGNETIC RESONANCE IMAGING BRAIN
     Dosage: 8.5 ML, ONCE
     Route: 042
     Dates: start: 20160224, end: 20160224

REACTIONS (3)
  - Cyanosis [None]
  - Dyspnoea [Recovered/Resolved]
  - Feeling hot [None]

NARRATIVE: CASE EVENT DATE: 20160224
